FAERS Safety Report 13581422 (Version 1)
Quarter: 2017Q2

REPORT INFORMATION
  Report Type: Spontaneous
  Country: ZA (occurrence: ZA)
  Receive Date: 20170525
  Receipt Date: 20170525
  Transmission Date: 20170830
  Serious: Yes (Hospitalization, Other)
  Sender: FDA-Public Use
  Company Number: ZA-GLAXOSMITHKLINE-ZA2017GSK069386

PATIENT
  Age: 44 Year
  Sex: Female

DRUGS (1)
  1. ZINNAT [Suspect]
     Active Substance: CEFUROXIME AXETIL
     Indication: BRONCHITIS
     Dosage: 500MG X 10^
     Dates: start: 20170220

REACTIONS (4)
  - Cardiac failure [Recovering/Resolving]
  - Rib fracture [Unknown]
  - Cardiac operation [Unknown]
  - Pain [Unknown]

NARRATIVE: CASE EVENT DATE: 201702
